FAERS Safety Report 19163827 (Version 1)
Quarter: 2021Q2

REPORT INFORMATION
  Report Type: Spontaneous
  Country: US (occurrence: US)
  Receive Date: 20210420
  Receipt Date: 20210420
  Transmission Date: 20210717
  Serious: Yes (Death)
  Sender: FDA-Public Use
  Company Number: None

PATIENT
  Age: 47 Year
  Sex: Female
  Weight: 46.1 kg

DRUGS (2)
  1. EFLORNITHINE 2.1 G/M2 [Suspect]
     Active Substance: EFLORNITHINE
     Dosage: ?          OTHER STRENGTH: 2.1 G/M2;OTHER FREQUENCY:Q8H X2 WEEKS;?
     Route: 048
     Dates: start: 20200420, end: 20210322
  2. LOMUSTINE 140 MG [Suspect]
     Active Substance: LOMUSTINE
     Route: 048
     Dates: start: 20200505, end: 20200505

REACTIONS (1)
  - Malignant neoplasm progression [None]

NARRATIVE: CASE EVENT DATE: 20210418
